FAERS Safety Report 7397080-0 (Version None)
Quarter: 2011Q2

REPORT INFORMATION
  Report Type: 
  Country: None (occurrence: None)
  Receive Date: 20110406
  Receipt Date: 20110329
  Transmission Date: 20111010
  Serious: Yes (Hospitalization)
  Sender: FDA-Public Use
  Company Number: A0773335A

PATIENT
  Age: 39 Year
  Sex: Female
  Weight: 109.1 kg

DRUGS (15)
  1. CARTIA XT [Concomitant]
  2. CELLCEPT [Concomitant]
  3. FOSAMAX [Concomitant]
  4. LOVASTATIN [Concomitant]
  5. MYFORTIC [Concomitant]
  6. NIFEDIPINE [Concomitant]
  7. LOVASTATIN [Concomitant]
  8. LABETALOL [Concomitant]
  9. TRIAMCINOLONE [Concomitant]
  10. POTASSIUM CHLORIDE [Concomitant]
  11. COZAAR [Concomitant]
  12. PREDNISONE [Concomitant]
  13. METOPROLOL [Concomitant]
  14. AVANDIA [Suspect]
     Indication: DIABETES MELLITUS
     Dosage: 4MG PER DAY
     Route: 048
     Dates: start: 20031125, end: 20070601
  15. AVAPRO [Concomitant]

REACTIONS (2)
  - CARDIAC VALVE DISEASE [None]
  - CARDIAC FAILURE CONGESTIVE [None]
